FAERS Safety Report 6291759-X (Version None)
Quarter: 2009Q3

REPORT INFORMATION
  Report Type: 
  Country: None (occurrence: None)
  Receive Date: 20090730
  Receipt Date: 20090727
  Transmission Date: 20100115
  Serious: Yes (Other)
  Sender: FDA-Public Use
  Company Number: US-ASTRAZENECA-2009UW21325

PATIENT
  Age: 45 Year
  Sex: Female

DRUGS (2)
  1. NEXIUM [Suspect]
     Indication: GASTROOESOPHAGEAL REFLUX DISEASE
     Dosage: TRIED STOPPING NEXIUM ONE DAY, BUT BY 5 PM SAME DAY ACID REFLUX RETURNED
     Route: 048
  2. FEMARA [Concomitant]

REACTIONS (2)
  - BREAST CANCER [None]
  - OOPHORECTOMY [None]
